FAERS Safety Report 4382781-9 (Version None)
Quarter: 2004Q2

REPORT INFORMATION
  Report Type: 
  Country: None (occurrence: None)
  Receive Date: 20040603
  Receipt Date: 20040301
  Transmission Date: 20050107
  Serious: Yes (Hospitalization)
  Sender: FDA-Public Use
  Company Number: 200411644US

PATIENT
  Age: 55 Year
  Sex: Male

DRUGS (3)
  1. LOVENOX [Suspect]
     Indication: ISCHAEMIC STROKE
     Dosage: 40 MG QD
     Dates: end: 20040227
  2. HJEPARIN-FRACTION, SODIUM SALT (LOVENOX) [Suspect]
     Indication: ISCHAEMIC STROKE
     Dosage: 1.5 MG QD
     Dates: start: 20040228, end: 20040229
  3. WARFARIN SODIUM [Concomitant]

REACTIONS (4)
  - CATHETER SITE HAEMORRHAGE [None]
  - HAEMATOCRIT DECREASED [None]
  - HAEMOGLOBIN DECREASED [None]
  - TRACHEAL HAEMORRHAGE [None]
